FAERS Safety Report 5836135-6 (Version None)
Quarter: 2008Q3

REPORT INFORMATION
  Report Type: 
  Country: None (occurrence: None)
  Receive Date: 20080805
  Receipt Date: 20080721
  Transmission Date: 20090109
  Serious: Yes (Hospitalization)
  Sender: FDA-Public Use
  Company Number: 390001M08ESP

PATIENT
  Age: 31 Year
  Sex: Female

DRUGS (3)
  1. CETROTIDE [Suspect]
     Indication: IN VITRO FERTILISATION
     Dosage: 1 DOSAGE FORMS, 1 IN 1 DAYS
     Dates: start: 20080501, end: 20080501
  2. CETROTIDE [Suspect]
     Indication: OVARIAN DISORDER
     Dosage: 1 DOSAGE FORMS, 1 IN 1 DAYS
     Dates: start: 20080501, end: 20080501
  3. PERGOVERIS (FIXED COMBINATION OF R-HFSH AND R-HLH) [Concomitant]

REACTIONS (7)
  - CONFUSIONAL STATE [None]
  - DEPRESSED LEVEL OF CONSCIOUSNESS [None]
  - DIABETES MELLITUS [None]
  - NAUSEA [None]
  - PITUITARY TUMOUR BENIGN [None]
  - PYREXIA [None]
  - VOMITING [None]
